FAERS Safety Report 6929903-0 (Version None)
Quarter: 2010Q3

REPORT INFORMATION
  Report Type: 
  Country: None (occurrence: None)
  Receive Date: 20100818
  Receipt Date: 20100809
  Transmission Date: 20110219
  Serious: No
  Sender: FDA-Public Use
  Company Number: US-US-EMD SERONO, INC.-7013930

PATIENT
  Sex: Male

DRUGS (2)
  1. REBIF [Suspect]
     Indication: MULTIPLE SCLEROSIS
     Route: 058
     Dates: start: 20020802
  2. STEROID [Concomitant]
     Route: 042
     Dates: start: 20010101

REACTIONS (4)
  - KYPHOSIS [None]
  - OPTIC NEURITIS [None]
  - PARAESTHESIA [None]
  - SENSORY DISTURBANCE [None]
